FAERS Safety Report 12491940 (Version 2)
Quarter: 2016Q3

REPORT INFORMATION
  Report Type: Report from Study
  Country: IT (occurrence: IT)
  Receive Date: 20160623
  Receipt Date: 20160711
  Transmission Date: 20161109
  Serious: Yes (Other)
  Sender: FDA-Public Use
  Company Number: IT-TEVA-669578ACC

PATIENT
  Age: 47 Year
  Sex: Female

DRUGS (1)
  1. COPAXONE [Suspect]
     Active Substance: GLATIRAMER ACETATE
     Indication: RELAPSING-REMITTING MULTIPLE SCLEROSIS
     Dosage: 20 MILLIGRAM/MILLILITERS DAILY;
     Route: 058
     Dates: start: 20141125, end: 20160521

REACTIONS (4)
  - Lipodystrophy acquired [Recovered/Resolved with Sequelae]
  - Injection site pain [Recovered/Resolved]
  - Asthenia [Not Recovered/Not Resolved]
  - Chest pain [Recovered/Resolved]

NARRATIVE: CASE EVENT DATE: 201512
